FAERS Safety Report 6839332-6 (Version None)
Quarter: 2010Q3

REPORT INFORMATION
  Report Type: 
  Country: None (occurrence: None)
  Receive Date: 20100708
  Receipt Date: 20100628
  Transmission Date: 20110219
  Serious: Yes (Life-Threatening, Hospitalization, Other)
  Sender: FDA-Public Use
  Company Number: AUR-APL-2009-00649

PATIENT
  Sex: Female

DRUGS (3)
  1. PAROXETINE HCL [Suspect]
  2. METHYLENE BLUE [Suspect]
     Indication: CYSTOSCOPY
     Dosage: 1MG/KG;
  3. ANAESTHIC [Concomitant]

REACTIONS (2)
  - EYE DISORDER [None]
  - SEROTONIN SYNDROME [None]
